FAERS Safety Report 11412692 (Version 1)
Quarter: 2015Q3

REPORT INFORMATION
  Report Type: Spontaneous
  Country: US (occurrence: US)
  Receive Date: 20150821
  Receipt Date: 20150821
  Transmission Date: 20151125
  Serious: No
  Sender: FDA-Public Use
  Company Number: US-ELI_LILLY_AND_COMPANY-US201202004793

PATIENT
  Age: 29 Year
  Sex: Female

DRUGS (2)
  1. HUMULIN N [Suspect]
     Active Substance: INSULIN HUMAN
     Indication: GESTATIONAL DIABETES
     Dosage: 7 U, EACH MORNING
     Dates: start: 20120204, end: 20120211
  2. HUMULIN N [Suspect]
     Active Substance: INSULIN HUMAN
     Dosage: 28 U, EACH EVENING
     Dates: start: 20120204, end: 20120211

REACTIONS (6)
  - Exposure during pregnancy [Recovered/Resolved]
  - Drug hypersensitivity [Unknown]
  - Injection site erythema [Unknown]
  - Injection site rash [Unknown]
  - Injection site pruritus [Unknown]
  - Injection site oedema [Unknown]

NARRATIVE: CASE EVENT DATE: 20120204
